FAERS Safety Report 4959822-0 (Version None)
Quarter: 2006Q1

REPORT INFORMATION
  Report Type: 
  Country: None (occurrence: None)
  Receive Date: 20060327
  Receipt Date: 20060315
  Transmission Date: 20060701
  Serious: Yes (Hospitalization)
  Sender: FDA-Public Use
  Company Number: 222997

PATIENT
  Age: 23 Year
  Sex: Female

DRUGS (4)
  1. RITUXAN [Suspect]
     Indication: SYSTEMIC LUPUS ERYTHEMATOSUS
     Dates: start: 20050901, end: 20050901
  2. ANTIBIOTIC (ANTIBIOTICS NOS) [Concomitant]
  3. IMURAN [Concomitant]
  4. PREDNISONE TAB [Concomitant]

REACTIONS (6)
  - CARDIAC FAILURE CONGESTIVE [None]
  - CARDIAC MURMUR [None]
  - CARDIAC VALVE DISEASE [None]
  - CARDIAC VALVE VEGETATION [None]
  - LUPUS ENDOCARDITIS [None]
  - MITRAL VALVE INCOMPETENCE [None]
